FAERS Safety Report 4903021-5 (Version None)
Quarter: 2006Q1

REPORT INFORMATION
  Report Type: 
  Country: None (occurrence: None)
  Receive Date: 20060207
  Receipt Date: 20060105
  Transmission Date: 20060701
  Serious: Yes (Life-Threatening)
  Sender: FDA-Public Use
  Company Number: 2006AP00036

PATIENT
  Age: 82 Year
  Sex: Male
  Weight: 65 kg

DRUGS (4)
  1. MEROPENEM [Suspect]
     Indication: URINARY TRACT INFECTION
     Route: 041
     Dates: start: 20051028, end: 20051102
  2. TSUMARA DAIKENCHUTO EXTRACT [Concomitant]
     Route: 048
     Dates: start: 20051024, end: 20051026
  3. MIYA BM [Concomitant]
     Route: 048
     Dates: start: 20051024, end: 20051026
  4. MAGNESIUM OXIDE [Concomitant]
     Route: 048
     Dates: start: 20051024, end: 20051026

REACTIONS (3)
  - BONE MARROW FAILURE [None]
  - PANCYTOPENIA [None]
  - SEPSIS [None]
